FAERS Safety Report 13919852 (Version 1)
Quarter: 2017Q3

REPORT INFORMATION
  Report Type: Spontaneous
  Country: US (occurrence: US)
  Receive Date: 20170829
  Receipt Date: 20170829
  Transmission Date: 20171127
  Serious: Yes (Other)
  Sender: FDA-Public Use
  Company Number: None

PATIENT
  Age: 39 Year
  Sex: Female
  Weight: 93.6 kg

DRUGS (8)
  1. LISINOPRIL. [Concomitant]
     Active Substance: LISINOPRIL
  2. WELLBUTRIN [Concomitant]
     Active Substance: BUPROPION HYDROCHLORIDE
  3. HYDROCHLOROTHIAZIDE. [Concomitant]
     Active Substance: HYDROCHLOROTHIAZIDE
  4. LAMICTAL [Concomitant]
     Active Substance: LAMOTRIGINE
  5. REMICADE [Concomitant]
     Active Substance: INFLIXIMAB
  6. CELEXA [Suspect]
     Active Substance: CITALOPRAM HYDROBROMIDE
     Indication: DEPRESSION
     Dosage: ?          QUANTITY:1 TABLET(S);?
     Route: 048
     Dates: start: 20170824, end: 20170824
  7. AMBIEN [Concomitant]
     Active Substance: ZOLPIDEM TARTRATE
  8. ATIVAN [Concomitant]
     Active Substance: LORAZEPAM

REACTIONS (8)
  - Myalgia [None]
  - Crying [None]
  - Musculoskeletal stiffness [None]
  - Nausea [None]
  - Movement disorder [None]
  - Chest discomfort [None]
  - Muscle rigidity [None]
  - Joint range of motion decreased [None]

NARRATIVE: CASE EVENT DATE: 20170824
